FAERS Safety Report 7207529-1 (Version None)
Quarter: 2010Q4

REPORT INFORMATION
  Report Type: 
  Country: None (occurrence: None)
  Receive Date: 20101221
  Receipt Date: 20101208
  Transmission Date: 20110411
  Serious: Yes (Death)
  Sender: FDA-Public Use
  Company Number: IDA-00466

PATIENT
  Age: 63 Year
  Sex: Male

DRUGS (8)
  1. PROPRANOLOL [Suspect]
     Dosage: 40 MG BID ORAL
     Route: 048
     Dates: start: 20100906
  2. ERBITUX [Suspect]
     Dosage: 17.2 ML ONCE INTRAVENOUS FORMULATION: INFUSION
     Route: 042
     Dates: start: 20101125, end: 20101125
  3. NEXIUM [Concomitant]
  4. (FUROSEMIDE) [Concomitant]
  5. SPIRONOLACTONE [Concomitant]
  6. DIGOXIN [Concomitant]
  7. POLARAMINE [Concomitant]
  8. SOL MEDROL (METHYLPREDNISOLONE, SUCCINATE SODIUM) [Concomitant]

REACTIONS (3)
  - ANAPHYLACTIC SHOCK [None]
  - CARDIO-RESPIRATORY ARREST [None]
  - INFUSION RELATED REACTION [None]
